FAERS Safety Report 10214682 (Version 2)
Quarter: 2014Q2

REPORT INFORMATION
  Report Type: Spontaneous
  Country: JP (occurrence: JP)
  Receive Date: 20140603
  Receipt Date: 20140603
  Transmission Date: 20141212
  Serious: Yes (Hospitalization)
  Sender: FDA-Public Use
  Company Number: JP-MYLANLABS-2014S1012325

PATIENT
  Age: 49 Year
  Sex: Male
  Weight: 71 kg

DRUGS (2)
  1. LOXOPROFEN [Suspect]
     Indication: SPINAL OSTEOARTHRITIS
     Route: 048
  2. KETOPROFEN [Suspect]
     Indication: SPINAL OSTEOARTHRITIS
     Route: 061

REACTIONS (3)
  - Asthma [Unknown]
  - Blood pressure increased [Unknown]
  - Heart rate increased [Unknown]
